FAERS Safety Report 19360661 (Version 2)
Quarter: 2021Q2

REPORT INFORMATION
  Report Type: Report from Study
  Country: CA (occurrence: CA)
  Receive Date: 20210601
  Receipt Date: 20210622
  Transmission Date: 20210717
  Serious: Yes (Other)
  Sender: FDA-Public Use
  Company Number: CA-JNJFOC-20210551006

PATIENT
  Sex: Female

DRUGS (11)
  1. SELEXIPAG [Suspect]
     Active Substance: SELEXIPAG
     Route: 048
  2. APO?FUROSEMIDE [Concomitant]
     Active Substance: FUROSEMIDE
  3. APO?PANTOPRAZOLE [Concomitant]
     Active Substance: PANTOPRAZOLE SODIUM
  4. GABAPENTIN. [Concomitant]
     Active Substance: GABAPENTIN
  5. ADCIRCA [Concomitant]
     Active Substance: TADALAFIL
  6. POTASSIUM CHLORIDE. [Concomitant]
     Active Substance: POTASSIUM CHLORIDE
  7. METFORMIN [Concomitant]
     Active Substance: METFORMIN HYDROCHLORIDE
  8. AMIODARONE [Concomitant]
     Active Substance: AMIODARONE
  9. SYNTHROID [Concomitant]
     Active Substance: LEVOTHYROXINE SODIUM
  10. SELEXIPAG [Suspect]
     Active Substance: SELEXIPAG
     Indication: PULMONARY HYPERTENSION
     Route: 048
     Dates: start: 20191107
  11. APO?OXAZEPAM [Concomitant]
     Active Substance: OXAZEPAM

REACTIONS (4)
  - Fall [Recovering/Resolving]
  - Erythema [Not Recovered/Not Resolved]
  - Ligament sprain [Recovering/Resolving]
  - Migraine [Not Recovered/Not Resolved]
